FAERS Safety Report 6396159-X (Version None)
Quarter: 2009Q4

REPORT INFORMATION
  Report Type: 
  Country: None (occurrence: None)
  Receive Date: 20091009
  Receipt Date: 20090929
  Transmission Date: 20100525
  Serious: Yes (Death)
  Sender: FDA-Public Use
  Company Number: FR-GENENTECH-286890

PATIENT
  Sex: Female

DRUGS (19)
  1. MABTHERA [Suspect]
     Indication: B-CELL LYMPHOMA
     Dosage: 660 MG, UNK
     Route: 042
     Dates: start: 20070412, end: 20090218
  2. BICNU [Concomitant]
     Indication: B-CELL LYMPHOMA
     Dosage: UNK
     Dates: start: 20090421
  3. ETOPOSIDE [Concomitant]
     Indication: B-CELL LYMPHOMA
     Dosage: UNK
     Dates: start: 20090119, end: 20090216
  4. ETOPOSIDE [Concomitant]
     Dosage: UNK
     Dates: start: 20090421
  5. ARACYTINE [Concomitant]
     Indication: B-CELL LYMPHOMA
     Dosage: UNK
     Dates: start: 20090421
  6. MELPHALAN [Concomitant]
     Indication: B-CELL LYMPHOMA
     Dosage: UNK
     Dates: start: 20090421
  7. CYCLOPHOSPHAMIDE [Concomitant]
     Indication: B-CELL LYMPHOMA
     Dosage: UNK
     Dates: start: 20070412, end: 20080912
  8. DOXORUBICIN HCL [Concomitant]
     Indication: B-CELL LYMPHOMA
     Dosage: UNK
     Dates: start: 20070412, end: 20080912
  9. PREDNISONE [Concomitant]
     Indication: B-CELL LYMPHOMA
     Dosage: UNK
     Dates: start: 20070412, end: 20080912
  10. VINCRISTINE [Concomitant]
     Indication: B-CELL LYMPHOMA
     Dosage: UNK
     Dates: start: 20070412, end: 20080912
  11. IFOSFAMIDE [Concomitant]
     Indication: B-CELL LYMPHOMA
     Dosage: UNK
     Dates: start: 20090119, end: 20090216
  12. MITOXANTRONE [Concomitant]
     Indication: B-CELL LYMPHOMA
     Dosage: UNK
     Dates: start: 20090119, end: 20090216
  13. NEORECORMON [Concomitant]
     Indication: DRUG USE FOR UNKNOWN INDICATION
  14. ZELITREX [Concomitant]
     Indication: DRUG USE FOR UNKNOWN INDICATION
  15. XANAX [Concomitant]
     Indication: DRUG USE FOR UNKNOWN INDICATION
  16. ZOLOFT [Concomitant]
     Indication: DRUG USE FOR UNKNOWN INDICATION
     Dosage: UNK
  17. PRIMPERAN [Concomitant]
     Indication: DRUG USE FOR UNKNOWN INDICATION
  18. DIFFU K [Concomitant]
     Indication: DRUG USE FOR UNKNOWN INDICATION
  19. SPECIAFOLDINE [Concomitant]
     Indication: DRUG USE FOR UNKNOWN INDICATION

REACTIONS (3)
  - AGRANULOCYTOSIS [None]
  - PANCYTOPENIA [None]
  - THROMBOSIS [None]
